FAERS Safety Report 8999757 (Version 2)
Quarter: 2013Q1

REPORT INFORMATION
  Report Type: Spontaneous
  Country: US (occurrence: US)
  Receive Date: 20130102
  Receipt Date: 20130206
  Transmission Date: 20140127
  Serious: Yes (Hospitalization)
  Sender: FDA-Public Use
  Company Number: US-INCYTE CORPORATION-2012IN002677

PATIENT
  Age: 86 Year
  Sex: Male
  Weight: 68.03 kg

DRUGS (17)
  1. JAKAFI [Suspect]
     Indication: SPLENOMEGALY
     Dosage: 15 MG, BID
     Route: 048
     Dates: start: 20121114
  2. JAKAFI [Suspect]
     Indication: POLYCYTHAEMIA VERA
  3. ALLOPURINOL [Concomitant]
     Dosage: 600 MG, QD
     Route: 048
  4. CARVEDILOL [Concomitant]
     Dosage: 3.125 MG, BID
     Route: 048
  5. LISINOPRIL [Concomitant]
     Dosage: 7.5 MG, QD
     Route: 048
  6. PROTONIX [Concomitant]
     Dosage: 40 MG, QD
     Route: 048
  7. ASPIRIN [Concomitant]
     Dosage: 81 MG, QD
     Route: 048
  8. COENZYME Q10 [Concomitant]
     Dosage: 100 MG, BID
     Route: 048
  9. DHEA [Concomitant]
     Dosage: 25 MG, QD
     Route: 048
  10. L-CARNITINE [Concomitant]
     Dosage: 500 MG, QD
     Route: 048
  11. OMEGA 3 FATTY ACIDS WITH VITAMIN E [Concomitant]
     Dosage: 1000 MG, QD
     Route: 048
  12. PEPSIN-BETAINE [Concomitant]
     Dosage: 1 CAPSULE, QD
     Route: 048
  13. SAW PALMETTO [Concomitant]
     Dosage: 500 MG, QD
     Route: 048
  14. SELENIUM [Concomitant]
     Dosage: 200 MCG, QD
     Route: 048
  15. VITAMIN B COMPLEX [Concomitant]
     Dosage: 1 TABLET, QD
     Route: 048
  16. VITAMIN D [Concomitant]
     Dosage: 5000 UT, QD
     Route: 048
  17. ZINC GLUCONATE [Concomitant]
     Dosage: 30 MG, QD
     Route: 048

REACTIONS (3)
  - Cerebrovascular accident [Recovered/Resolved]
  - Hemiparesis [Recovered/Resolved]
  - Atrial fibrillation [Recovered/Resolved]
